FAERS Safety Report 8435311-6 (Version None)
Quarter: 2012Q2

REPORT INFORMATION
  Report Type: 
  Country: None (occurrence: None)
  Receive Date: 20120608
  Receipt Date: 20120608
  Transmission Date: 20120825
  Serious: Yes (Hospitalization)
  Sender: FDA-Public Use
  Company Number: None

PATIENT
  Age: 66 Year
  Sex: Female
  Weight: 60 kg

DRUGS (16)
  1. AUQUADEKS SOFT GEL [Concomitant]
  2. FLONASE [Concomitant]
  3. PEMETREXED [Suspect]
  4. DEXAMETHASONE [Concomitant]
  5. BACTROBAN TOPICAL [Concomitant]
  6. CREON [Concomitant]
  7. FOLIC ACID [Concomitant]
  8. OMEPRAZOLE [Concomitant]
  9. PERCOCET [Concomitant]
  10. CARBOPLATIN [Suspect]
     Indication: LUNG NEOPLASM MALIGNANT
  11. SYNTHROID [Concomitant]
  12. VITAMIN D [Concomitant]
  13. BEVACIZUMAB [Suspect]
  14. PROCTOFOAM [Concomitant]
  15. PEMETREXED [Concomitant]
  16. CARBOPLATIN [Concomitant]

REACTIONS (2)
  - CLOSTRIDIUM DIFFICILE COLITIS [None]
  - DEHYDRATION [None]
